FAERS Safety Report 6384406-X (Version None)
Quarter: 2009Q4

REPORT INFORMATION
  Report Type: 
  Country: None (occurrence: None)
  Receive Date: 20091001
  Receipt Date: 20090924
  Transmission Date: 20100525
  Serious: Yes (Other)
  Sender: FDA-Public Use
  Company Number: US-JNJFOC-20090907811

PATIENT
  Sex: Female
  Weight: 49.9 kg

DRUGS (10)
  1. INVEGA [Suspect]
     Indication: DRUG USE FOR UNKNOWN INDICATION
     Route: 048
  2. DETROL LA [Suspect]
     Indication: HYPERTONIC BLADDER
  3. MACRODANTIN [Suspect]
     Indication: DRUG USE FOR UNKNOWN INDICATION
  4. COUMADIN [Concomitant]
     Indication: DRUG USE FOR UNKNOWN INDICATION
  5. COREG [Concomitant]
     Indication: DRUG USE FOR UNKNOWN INDICATION
  6. K-DUR [Concomitant]
     Indication: DRUG USE FOR UNKNOWN INDICATION
  7. CARDIZEM [Concomitant]
     Indication: DRUG USE FOR UNKNOWN INDICATION
  8. LANOXIN [Concomitant]
     Indication: DRUG USE FOR UNKNOWN INDICATION
  9. PRILOSEC [Concomitant]
     Indication: DRUG USE FOR UNKNOWN INDICATION
  10. AMIODARONE [Concomitant]
     Indication: DRUG USE FOR UNKNOWN INDICATION

REACTIONS (3)
  - COORDINATION ABNORMAL [None]
  - FEELING ABNORMAL [None]
  - NOCTURIA [None]
